FAERS Safety Report 7107180-8 (Version None)
Quarter: 2010Q4

REPORT INFORMATION
  Report Type: 
  Country: None (occurrence: None)
  Receive Date: 20101116
  Receipt Date: 20101018
  Transmission Date: 20110411
  Serious: No
  Sender: FDA-Public Use
  Company Number: US-ABBOTT-10P-163-0679321-00

PATIENT
  Sex: Female
  Weight: 59.02 kg

DRUGS (3)
  1. SIMCOR [Suspect]
     Indication: BLOOD TRIGLYCERIDES INCREASED
     Dosage: 500/20 MG, 1 IN 1 DAY
     Dates: start: 20101015
  2. LISINOPRIL [Concomitant]
     Indication: PRODUCT USED FOR UNKNOWN INDICATION
  3. LIPITOR [Concomitant]
     Indication: BLOOD CHOLESTEROL INCREASED

REACTIONS (8)
  - ABDOMINAL DISCOMFORT [None]
  - FATIGUE [None]
  - FLUSHING [None]
  - HEADACHE [None]
  - NECK PAIN [None]
  - PARAESTHESIA [None]
  - RASH MACULAR [None]
  - RASH PRURITIC [None]
